FAERS Safety Report 23334628 (Version 1)
Quarter: 2023Q4

REPORT INFORMATION
  Report Type: Spontaneous
  Country: FR (occurrence: FR)
  Receive Date: 20231224
  Receipt Date: 20231224
  Transmission Date: 20240110
  Serious: Yes (Hospitalization)
  Sender: FDA-Public Use
  Company Number: None

PATIENT
  Age: 66 Year
  Sex: Female

DRUGS (5)
  1. GEMCITABINE HYDROCHLORIDE [Suspect]
     Active Substance: GEMCITABINE HYDROCHLORIDE
     Indication: Cholangiocarcinoma
     Dosage: CHEMOTHERAPY TREATMENT
     Route: 042
     Dates: start: 20231113, end: 20231113
  2. SKENAN [Suspect]
     Active Substance: MORPHINE SULFATE
     Indication: Pain
     Dosage: 10 MG MATIN ET SOIR
     Route: 048
     Dates: start: 20231115, end: 20231125
  3. CISPLATIN [Suspect]
     Active Substance: CISPLATIN
     Indication: Cholangiocarcinoma
     Dosage: CHEMOTHERAPY TREATMENT
     Route: 042
     Dates: start: 20231113, end: 20231113
  4. IMFINZI [Suspect]
     Active Substance: DURVALUMAB
     Indication: Cholangiocarcinoma
     Dosage: CHEMOTHERAPY TREATMENT
     Route: 042
     Dates: start: 20231113, end: 20231113
  5. MORPHINE SULFATE [Suspect]
     Active Substance: MORPHINE SULFATE
     Indication: Pain
     Dosage: 5 MG IF NEEDED (1 AS NECESSARY)
     Route: 048
     Dates: start: 20231115, end: 20231125

REACTIONS (1)
  - Hypoglycaemia [Not Recovered/Not Resolved]

NARRATIVE: CASE EVENT DATE: 20231115
